FAERS Safety Report 15845179 (Version 3)
Quarter: 2019Q2

REPORT INFORMATION
  Report Type: Report from Study
  Country: None (occurrence: US)
  Receive Date: 20190119
  Receipt Date: 20190405
  Transmission Date: 20190711
  Serious: Yes (Hospitalization)
  Sender: FDA-Public Use
  Company Number: US-ABBVIE-19K-163-2627992-00

PATIENT
  Age: 60 Year
  Sex: Female
  Weight: 118.95 kg

DRUGS (10)
  1. HUMIRA [Suspect]
     Active Substance: ADALIMUMAB
     Indication: CROHN^S DISEASE
     Route: 058
     Dates: start: 2017, end: 201812
  2. TRIAMCINOLONE [Concomitant]
     Active Substance: TRIAMCINOLONE
     Indication: PRURITUS
  3. AMLODIPINE [Concomitant]
     Active Substance: AMLODIPINE BESYLATE
     Indication: HYPERTENSION
  4. LOVASTATIN. [Concomitant]
     Active Substance: LOVASTATIN
     Indication: BLOOD CHOLESTEROL INCREASED
  5. ASPIRIN. [Concomitant]
     Active Substance: ASPIRIN
     Indication: BLOOD PRESSURE MEASUREMENT
  6. CLONIDINE. [Concomitant]
     Active Substance: CLONIDINE
     Indication: HYPERTENSION
  7. ONDANSETRON [Concomitant]
     Active Substance: ONDANSETRON
     Indication: NAUSEA
  8. HUMIRA [Suspect]
     Active Substance: ADALIMUMAB
     Indication: CROHN^S DISEASE
  9. LANTUS [Concomitant]
     Active Substance: INSULIN GLARGINE
     Indication: PRODUCT USED FOR UNKNOWN INDICATION
  10. RANITIDINE. [Concomitant]
     Active Substance: RANITIDINE
     Indication: PRODUCT USED FOR UNKNOWN INDICATION

REACTIONS (15)
  - Face injury [Recovering/Resolving]
  - Angina pectoris [Recovering/Resolving]
  - Adverse event [Recovered/Resolved]
  - Fall [Recovering/Resolving]
  - Peripheral swelling [Not Recovered/Not Resolved]
  - Muscle contusion [Recovering/Resolving]
  - Injection site pain [Recovered/Resolved]
  - Back pain [Recovering/Resolving]
  - Swelling [Unknown]
  - Drug level changed [Unknown]
  - Inflammation [Unknown]
  - Hypertension [Not Recovered/Not Resolved]
  - Muscle strain [Unknown]
  - Contusion [Recovering/Resolving]
  - Costochondritis [Recovering/Resolving]

NARRATIVE: CASE EVENT DATE: 201812
